FAERS Safety Report 8697858 (Version 2)
Quarter: 2012Q4

REPORT INFORMATION
  Report Type: Spontaneous
  Country: US (occurrence: None)
  Receive Date: 20120717
  Receipt Date: 20121115
  Transmission Date: 20130627
  Serious: No
  Sender: FDA-Public Use
  Company Number: 2012-3156

PATIENT
  Age: 59 Year
  Sex: Female
  Weight: 99.8 kg

DRUGS (12)
  1. SOMATULINE DEPOT [Suspect]
     Indication: ACROMEGALY
     Dosage: 60 MG (60 MG, 1 IN 28 D), SUBCUTANEOUS
     Route: 058
     Dates: start: 20110510
  2. UNSPECIFIED BETA BLOCKER (BETA BLOCKING AGENTS) [Concomitant]
  3. FUROSEMIDE [Concomitant]
  4. ULORIC [Concomitant]
  5. SENSIPAR (CINACALCET HYDROCHLORIDE) [Concomitant]
  6. CALCITRIOL (CALCITRIOL) [Concomitant]
  7. CRESTOR (ROSUVASTATIN) [Concomitant]
  8. FERROUS SULPHATE (FERROUS SULFATE) [Concomitant]
  9. VITAMIN D3 (COLECALCIFEROL) [Concomitant]
  10. SENNA AND LAXATIVE (SENNA ALEXANDRINA) [Concomitant]
  11. HYDROCODONE (HYDROCODONE) [Concomitant]
  12. CYCLOBENZAPRINE (CYCLOBENZAPRINE) [Concomitant]

REACTIONS (19)
  - Renal cancer [None]
  - Muscle spasms [None]
  - Blood glucose decreased [None]
  - Nausea [None]
  - Alopecia [None]
  - Hot flush [None]
  - Dizziness [None]
  - Pain in extremity [None]
  - Arthralgia [None]
  - Oedema peripheral [None]
  - Oedema peripheral [None]
  - Condition aggravated [None]
  - Amnesia [None]
  - Aphasia [None]
  - Bone disorder [None]
  - Weight increased [None]
  - Influenza like illness [None]
  - Constipation [None]
  - Vomiting [None]
